FAERS Safety Report 9659371 (Version 1)
Quarter: 2013Q4

REPORT INFORMATION
  Report Type: Spontaneous
  Country: GB (occurrence: GB)
  Receive Date: 20131031
  Receipt Date: 20131031
  Transmission Date: 20140711
  Serious: Yes (Hospitalization, Other)
  Sender: FDA-Public Use
  Company Number: GB-RANBAXY-2013R1-74589

PATIENT
  Age: 16 Year
  Sex: Male
  Weight: 65 kg

DRUGS (1)
  1. CO-DYDRAMOL [Suspect]
     Indication: PAIN
     Dosage: 2 DF, QID
     Route: 048
     Dates: start: 20130827, end: 20130830

REACTIONS (1)
  - Pancreatitis acute [Recovered/Resolved]
